FAERS Safety Report 21218026 (Version 1)
Quarter: 2022Q3

REPORT INFORMATION
  Report Type: Spontaneous
  Country: GB (occurrence: GB)
  Receive Date: 20220816
  Receipt Date: 20220816
  Transmission Date: 20221027
  Serious: Yes (Other)
  Sender: FDA-Public Use
  Company Number: GB-MHRA-MED-202208081556312450-CRTNF

PATIENT
  Sex: Female

DRUGS (1)
  1. ANIDULAFUNGIN [Suspect]
     Active Substance: ANIDULAFUNGIN
     Dosage: UNK

REACTIONS (5)
  - Oxygen saturation decreased [Unknown]
  - Pyrexia [Unknown]
  - Chills [Recovering/Resolving]
  - Headache [Unknown]
  - Back pain [Unknown]

NARRATIVE: CASE EVENT DATE: 20220808
